FAERS Safety Report 5662227-0 (Version None)
Quarter: 2008Q1

REPORT INFORMATION
  Report Type: 
  Country: None (occurrence: None)
  Receive Date: 20080312
  Receipt Date: 20080303
  Transmission Date: 20080703
  Serious: Yes (Hospitalization, Other)
  Sender: FDA-Public Use
  Company Number: US-PFIZER INC-2008009669

PATIENT
  Sex: Female
  Weight: 83 kg

DRUGS (1)
  1. ACCURETIC [Suspect]
     Indication: HYPERTENSION
     Dosage: TEXT:2 DF-FREQ:BID
     Route: 048
     Dates: start: 20070223, end: 20080101

REACTIONS (4)
  - ASTHENIA [None]
  - DEHYDRATION [None]
  - DIZZINESS [None]
  - URINARY TRACT INFECTION [None]
